FAERS Safety Report 6523079-X (Version None)
Quarter: 2009Q4

REPORT INFORMATION
  Report Type: 
  Country: None (occurrence: None)
  Receive Date: 20091222
  Receipt Date: 20091215
  Transmission Date: 20100525
  Serious: Yes (Death)
  Sender: FDA-Public Use
  Company Number: 2009US004321

PATIENT
  Age: 63 Year
  Sex: Male

DRUGS (4)
  1. PROGRAF [Suspect]
     Indication: RENAL TRANSPLANT
     Dosage: 3 MG, BID;
     Dates: start: 20050209, end: 20091023
  2. PREDNISONE [Concomitant]
  3. MYCOPHENOLIC ACID [Concomitant]
  4. INSULIN (INSULIN) [Concomitant]

REACTIONS (1)
  - MYOCARDIAL INFARCTION [None]
